FAERS Safety Report 7800565-3 (Version None)
Quarter: 2011Q4

REPORT INFORMATION
  Report Type: 
  Country: None (occurrence: None)
  Receive Date: 20111006
  Receipt Date: 20111003
  Transmission Date: 20120403
  Serious: No
  Sender: FDA-Public Use
  Company Number: US-PFIZER INC-2011236013

PATIENT
  Sex: Male

DRUGS (1)
  1. ALAVERT [Suspect]
     Dosage: UNK
     Route: 065

REACTIONS (1)
  - PENIS DISORDER [None]
